FAERS Safety Report 12383266 (Version 1)
Quarter: 2016Q2

REPORT INFORMATION
  Report Type: Spontaneous
  Country: US (occurrence: US)
  Receive Date: 20160518
  Receipt Date: 20160518
  Transmission Date: 20160815
  Serious: No
  Sender: FDA-Public Use
  Company Number: US-PFIZER INC-2016255995

PATIENT
  Sex: Female

DRUGS (5)
  1. TRIMETHOPRIM. [Suspect]
     Active Substance: TRIMETHOPRIM
  2. DICLOXACILLIN [Suspect]
     Active Substance: DICLOXACILLIN
  3. AMPICILLIN SODIUM. [Suspect]
     Active Substance: AMPICILLIN SODIUM
  4. SULFAMETHOXAZOLE [Suspect]
     Active Substance: SULFAMETHOXAZOLE
  5. ASPIRIN. [Suspect]
     Active Substance: ASPIRIN

REACTIONS (1)
  - Drug hypersensitivity [Unknown]
